FAERS Safety Report 7547015 (Version 2)
Quarter: 2014Q1

REPORT INFORMATION
  Report Type: Spontaneous
  Country: US (occurrence: US)
  Receive Date: 20100819
  Receipt Date: 20140324
  Transmission Date: 20141002
  Serious: Yes (Hospitalization, Other)
  Sender: FDA-Public Use
  Company Number: US-ROCHE-702764

PATIENT
  Age: 20 Year
  Sex: Male
  Weight: 65.8 kg

DRUGS (2)
  1. ACCUTANE [Suspect]
     Indication: ACNE
     Route: 048
     Dates: start: 19930909, end: 19940222
  2. BACTROBAN [Concomitant]
     Indication: ACNE

REACTIONS (5)
  - Crohn^s disease [Unknown]
  - Inflammatory bowel disease [Unknown]
  - Anal fissure [Unknown]
  - Colitis ulcerative [Unknown]
  - Oral herpes [Unknown]
